FAERS Safety Report 5675162-9 (Version None)
Quarter: 2008Q2

REPORT INFORMATION
  Report Type: 
  Country: None (occurrence: None)
  Receive Date: 20080303
  Receipt Date: 20070125
  Transmission Date: 20081010
  Serious: Yes (Death)
  Sender: FDA-Public Use
  Company Number: RB-4925-2007

PATIENT
  Age: 38 Year
  Sex: Female

DRUGS (3)
  1. SUBOXONE [Suspect]
     Indication: DRUG DEPENDENCE
     Dosage: 2 MG TID SUBLINGUAL
     Route: 060
     Dates: start: 20060711, end: 20061203
  2. OXCARBAZEPINE [Concomitant]
  3. ANTIDEPRESSANTS [Concomitant]

REACTIONS (1)
  - ROAD TRAFFIC ACCIDENT [None]
